FAERS Safety Report 4967810-3 (Version None)
Quarter: 2006Q2

REPORT INFORMATION
  Report Type: 
  Country: None (occurrence: None)
  Receive Date: 20060410
  Receipt Date: 20050928
  Transmission Date: 20061013
  Serious: Yes (Hospitalization)
  Sender: FDA-Public Use
  Company Number: US-MERCK-0509USA04517

PATIENT
  Age: 60 Year
  Sex: Female
  Weight: 105 kg

DRUGS (2)
  1. VIOXX [Suspect]
     Indication: ARTHRALGIA
     Route: 048
     Dates: start: 20010122, end: 20040930
  2. VIOXX [Suspect]
     Route: 048
     Dates: start: 20010122, end: 20040930

REACTIONS (2)
  - ABDOMINAL PAIN [None]
  - CEREBROVASCULAR ACCIDENT [None]
